FAERS Safety Report 8215113-6 (Version None)
Quarter: 2012Q1

REPORT INFORMATION
  Report Type: 
  Country: None (occurrence: None)
  Receive Date: 20120316
  Receipt Date: 20120306
  Transmission Date: 20120608
  Serious: Yes (Hospitalization)
  Sender: FDA-Public Use
  Company Number: MX-SANOFI-AVENTIS-2012SA010600

PATIENT
  Age: 77 Year
  Sex: Male
  Weight: 66 kg

DRUGS (2)
  1. PREDNISONE TAB [Suspect]
     Indication: PROSTATE CANCER
     Dates: start: 20120131, end: 20120210
  2. CABAZITAXEL [Suspect]
     Indication: PROSTATE CANCER
     Route: 042
     Dates: start: 20120131, end: 20120131

REACTIONS (3)
  - ELECTROLYTE IMBALANCE [None]
  - PNEUMONIA [None]
  - NEUTROPENIC INFECTION [None]
